FAERS Safety Report 7536153-6 (Version None)
Quarter: 2011Q2

REPORT INFORMATION
  Report Type: 
  Country: None (occurrence: None)
  Receive Date: 20110609
  Receipt Date: 20110524
  Transmission Date: 20111010
  Serious: No
  Sender: FDA-Public Use
  Company Number: US-B.I. PHARMACEUTICALS,INC./RIDGEFIELD-2011-BP-10726BP

PATIENT
  Sex: Male

DRUGS (7)
  1. ATENOLOL [Concomitant]
  2. NORVASC [Concomitant]
  3. SPIRIVA [Suspect]
     Indication: BRONCHITIS
     Dosage: 18 MCG
     Route: 055
     Dates: start: 20040101
  4. SPIRIVA [Suspect]
     Indication: EMPHYSEMA
  5. SPIRIVA [Suspect]
     Indication: CHRONIC OBSTRUCTIVE PULMONARY DISEASE
  6. BENAZAPRIL [Concomitant]
  7. ADVAIR DISKUS 100/50 [Concomitant]
     Indication: BRONCHITIS
     Dosage: 250/50; BID

REACTIONS (2)
  - HYPERTENSION [None]
  - DYSPNOEA [None]
